FAERS Safety Report 4772041-6 (Version None)
Quarter: 2005Q3

REPORT INFORMATION
  Report Type: 
  Country: None (occurrence: None)
  Receive Date: 20050916
  Receipt Date: 20050907
  Transmission Date: 20060218
  Serious: Yes (Death, Hospitalization)
  Sender: FDA-Public Use
  Company Number: GXKR2005US01558

PATIENT
  Age: 72 Year
  Sex: Male

DRUGS (3)
  1. ALLOPURINOL [Suspect]
     Indication: BLOOD URIC ACID INCREASED
  2. INDOMETHACIN [Concomitant]
  3. PROBENECID [Concomitant]

REACTIONS (9)
  - ANURIA [None]
  - BLOOD CREATININE INCREASED [None]
  - BLOOD UREA INCREASED [None]
  - CARDIOMEGALY [None]
  - COUGH [None]
  - RENAL CYST [None]
  - RENAL DISORDER [None]
  - TOXIC EPIDERMAL NECROLYSIS [None]
  - VENTRICULAR FIBRILLATION [None]
